FAERS Safety Report 4702647-1 (Version None)
Quarter: 2005Q2

REPORT INFORMATION
  Report Type: 
  Country: None (occurrence: None)
  Receive Date: 20050629
  Receipt Date: 20040825
  Transmission Date: 20051028
  Serious: No
  Sender: FDA-Public Use
  Company Number: US-GLAXOSMITHKLINE-A0523453A

PATIENT
  Age: 33 Year
  Sex: Male

DRUGS (2)
  1. ZYBAN [Suspect]
     Dosage: 300MG TWICE PER DAY
     Route: 048
     Dates: start: 20040816
  2. NO CONCURRENT MEDICATION [Concomitant]

REACTIONS (4)
  - ABNORMAL DREAMS [None]
  - DRUG INEFFECTIVE [None]
  - FEELING JITTERY [None]
  - MYALGIA [None]
